FAERS Safety Report 9315138 (Version 1)
Quarter: 2013Q2

REPORT INFORMATION
  Report Type: Spontaneous
  Country: PT (occurrence: PT)
  Receive Date: 20130529
  Receipt Date: 20130529
  Transmission Date: 20140414
  Serious: Yes (Other)
  Sender: FDA-Public Use
  Company Number: PT-ROCHE-1229228

PATIENT
  Age: 37 Year
  Sex: 0

DRUGS (2)
  1. XOLAIR [Suspect]
     Indication: DERMATITIS ATOPIC
     Route: 065
  2. XOLAIR [Suspect]
     Indication: OFF LABEL USE

REACTIONS (3)
  - Eczema [Unknown]
  - Drug ineffective [Unknown]
  - Blood immunoglobulin E increased [Unknown]
